FAERS Safety Report 17575212 (Version 1)
Quarter: 2020Q1

REPORT INFORMATION
  Report Type: Spontaneous
  Country: US (occurrence: US)
  Receive Date: 20200317
  Receipt Date: 20200317
  Transmission Date: 20200409
  Serious: No
  Sender: FDA-Public Use
  Company Number: None

PATIENT
  Age: 53 Year
  Sex: Female
  Weight: 93.89 kg

DRUGS (19)
  1. D3 VITAMIN [Concomitant]
  2. GINKGO BILOBA [Concomitant]
     Active Substance: GINKGO
  3. FAMOTIDINE. [Concomitant]
     Active Substance: FAMOTIDINE
  4. COMPLETE MULTIVITAMINS [Concomitant]
  5. FIBER [Concomitant]
     Active Substance: PSYLLIUM HUSK
  6. IBUPROFEN. [Concomitant]
     Active Substance: IBUPROFEN
  7. PANTOPRAZOLE [Concomitant]
     Active Substance: PANTOPRAZOLE
  8. MULTIVITAMS [Concomitant]
  9. SYMBICORT [Concomitant]
     Active Substance: BUDESONIDE\FORMOTEROL FUMARATE DIHYDRATE
  10. VITAM E [Concomitant]
  11. MONTELUKAST SOD [Concomitant]
     Active Substance: MONTELUKAST SODIUM
  12. DICLOFENAC SODIUM. [Concomitant]
     Active Substance: DICLOFENAC SODIUM
  13. RANITIDINE 150MG TAB GENERIC FOR ZANTAC [Suspect]
     Active Substance: RANITIDINE HYDROCHLORIDE
     Indication: GASTRIC ULCER
     Dosage: ?          QUANTITY:2 DF DOSAGE FORM;?
     Route: 048
     Dates: start: 20191004, end: 20191220
  14. TURMERIC [Concomitant]
     Active Substance: HERBALS\TURMERIC
  15. CETRIZINE HCL [Concomitant]
  16. FLUTICANSON NASAL SRAY [Concomitant]
  17. SLEEP APNEA MACHINE [Concomitant]
  18. RANITIDINE 150MG TAB GENERIC FOR ZANTAC [Suspect]
     Active Substance: RANITIDINE HYDROCHLORIDE
     Indication: GASTROOESOPHAGEAL REFLUX DISEASE
  19. ALBUTEROL INHALER [Concomitant]
     Active Substance: ALBUTEROL

REACTIONS (6)
  - Abdominal pain [None]
  - Diarrhoea [None]
  - Headache [None]
  - Chest discomfort [None]
  - Constipation [None]
  - Dyspnoea [None]

NARRATIVE: CASE EVENT DATE: 20191005
